FAERS Safety Report 6347019-1 (Version None)
Quarter: 2009Q3

REPORT INFORMATION
  Report Type: 
  Country: None (occurrence: None)
  Receive Date: 20090909
  Receipt Date: 20090909
  Transmission Date: 20100115
  Serious: Yes (Other)
  Sender: FDA-Public Use
  Company Number: None

PATIENT
  Age: 61 Year
  Sex: Female
  Weight: 74.8435 kg

DRUGS (1)
  1. CHANTIX [Suspect]
     Indication: SMOKING CESSATION THERAPY
     Dosage: 1 MG TWICE A DAY PO
     Route: 048

REACTIONS (16)
  - ABNORMAL BEHAVIOUR [None]
  - AGITATION [None]
  - AMNESIA [None]
  - ANGER [None]
  - ANXIETY [None]
  - DISTURBANCE IN ATTENTION [None]
  - FLATULENCE [None]
  - FLIGHT OF IDEAS [None]
  - HEADACHE [None]
  - HOSTILITY [None]
  - MEMORY IMPAIRMENT [None]
  - MENTAL IMPAIRMENT [None]
  - MOOD ALTERED [None]
  - NAUSEA [None]
  - PARANOIA [None]
  - RESTLESSNESS [None]
